FAERS Safety Report 26209874 (Version 1)
Quarter: 2025Q4

REPORT INFORMATION
  Report Type: Spontaneous
  Country: CN (occurrence: CN)
  Receive Date: 20251229
  Receipt Date: 20251229
  Transmission Date: 20260117
  Serious: Yes (Hospitalization)
  Sender: NOVARTIS
  Company Number: CN-002147023-NVSC2025CN195609

PATIENT
  Age: 71 Year
  Sex: Male
  Weight: 78.6 kg

DRUGS (2)
  1. CARBAMAZEPINE [Suspect]
     Active Substance: CARBAMAZEPINE
     Indication: Muscle spasms
     Dosage: 1 DOSAGE FORM, BID
     Route: 048
     Dates: start: 20251104, end: 20251127
  2. VITAMIN B1 [Concomitant]
     Active Substance: THIAMINE HYDROCHLORIDE
     Indication: Product used for unknown indication
     Dosage: 1 DOSAGE FORM, BID
     Route: 065
     Dates: start: 20251104

REACTIONS (11)
  - Drug eruption [Recovering/Resolving]
  - Lip swelling [Recovering/Resolving]
  - Erythema [Recovered/Resolved]
  - Pruritus [Recovering/Resolving]
  - Rash maculo-papular [Recovered/Resolved]
  - Blood pressure abnormal [Recovering/Resolving]
  - Oropharyngeal erythema [Recovering/Resolving]
  - Pyrexia [Recovered/Resolved]
  - Blood pressure systolic increased [Recovering/Resolving]
  - Blood pressure diastolic increased [Recovering/Resolving]
  - Off label use [Unknown]

NARRATIVE: CASE EVENT DATE: 20251125
